FAERS Safety Report 8499442-7 (Version None)
Quarter: 2012Q3

REPORT INFORMATION
  Report Type: 
  Country: None (occurrence: None)
  Receive Date: 20120710
  Receipt Date: 20110908
  Transmission Date: 20120928
  Serious: No
  Sender: FDA-Public Use
  Company Number: US-FOUGERA-2012FO000108

PATIENT
  Sex: Female

DRUGS (2)
  1. METRONIDAZOLE [Suspect]
     Indication: DERMATITIS
     Route: 061
     Dates: start: 20110719, end: 20110802
  2. METRONIDAZOLE [Suspect]
     Indication: ROSACEA
     Route: 061
     Dates: start: 20110719, end: 20110802

REACTIONS (2)
  - EYE PAIN [None]
  - DRUG INEFFECTIVE [None]
